FAERS Safety Report 5303436-X (Version None)
Quarter: 2007Q2

REPORT INFORMATION
  Report Type: 
  Country: None (occurrence: None)
  Receive Date: 20070420
  Receipt Date: 20070410
  Transmission Date: 20071010
  Serious: Yes (Other)
  Sender: FDA-Public Use
  Company Number: US-ROCHE-492142

PATIENT
  Age: 59 Year
  Sex: Female
  Weight: 81.6 kg

DRUGS (6)
  1. BONIVA [Suspect]
     Indication: OSTEOPOROSIS
     Dosage: RECEIVED DOSE 13 SEPTEMBER 2006 AND 14 DECEMBER 2006.  THE DECISION TO STOP THE DRUG WAS 09 APRIL 2+
     Route: 042
     Dates: start: 20060913, end: 20061214
  2. PREDNISONE TAB [Concomitant]
     Dosage: RECENTLY STOPPED AT THE TIME OF THE REPORT.
  3. SYNTHROID [Concomitant]
  4. CYMBALTA [Concomitant]
  5. TOPROL-XL [Concomitant]
  6. NORVASC [Concomitant]

REACTIONS (1)
  - OSTEONECROSIS [None]
